FAERS Safety Report 23226432 (Version 1)
Quarter: 2023Q4

REPORT INFORMATION
  Report Type: Spontaneous
  Country: GB (occurrence: GB)
  Receive Date: 20231124
  Receipt Date: 20231124
  Transmission Date: 20240110
  Serious: Yes (Other)
  Sender: FDA-Public Use
  Company Number: None

PATIENT
  Sex: Female

DRUGS (1)
  1. AZITHROMYCIN [Suspect]
     Active Substance: AZITHROMYCIN
     Indication: Bronchitis
     Dosage: UNK

REACTIONS (10)
  - Constipation [Not Recovered/Not Resolved]
  - Abdominal pain upper [Not Recovered/Not Resolved]
  - Gallbladder polyp [Not Recovered/Not Resolved]
  - Abdominal distension [Unknown]
  - Abdominal tenderness [Unknown]
  - Flatulence [Not Recovered/Not Resolved]
  - Insomnia [Unknown]
  - Abdominal discomfort [Unknown]
  - Asthenia [Unknown]
  - Fatigue [Unknown]
